FAERS Safety Report 7526604-5 (Version None)
Quarter: 2011Q2

REPORT INFORMATION
  Report Type: 
  Country: None (occurrence: None)
  Receive Date: 20110606
  Receipt Date: 20110602
  Transmission Date: 20111010
  Serious: Yes (Life-Threatening, Hospitalization)
  Sender: FDA-Public Use
  Company Number: ES-ASTRAZENECA-2011SE34016

PATIENT
  Age: 44 Year
  Sex: Male

DRUGS (4)
  1. SEROQUEL [Interacting]
     Dosage: 60 TABLET ONCE
     Route: 048
     Dates: start: 20101206, end: 20101206
  2. TRAZODONE HCL [Interacting]
     Indication: DEPRESSION
     Route: 048
     Dates: start: 20090101, end: 20101206
  3. DIAZEPAM [Interacting]
     Indication: DEPRESSION
     Route: 048
     Dates: start: 20070101, end: 20101206
  4. SEROQUEL [Suspect]
     Indication: SCHIZOPHRENIA
     Route: 048
     Dates: start: 20090101, end: 20101205

REACTIONS (5)
  - SUICIDE ATTEMPT [None]
  - INTENTIONAL OVERDOSE [None]
  - CONFUSIONAL STATE [None]
  - DRUG INTERACTION [None]
  - SINUS TACHYCARDIA [None]
